FAERS Safety Report 8776272 (Version 2)
Quarter: 2012Q4

REPORT INFORMATION
  Report Type: 
  Country: US (occurrence: US)
  Receive Date: 20120910
  Receipt Date: 20121107
  Transmission Date: 20130627
  Serious: Yes (Hospitalization)
  Sender: FDA-Public Use
  Company Number: US-GILEAD-2012-0060849

PATIENT
  Sex: Female

DRUGS (7)
  1. LETAIRIS [Suspect]
     Indication: CONGENITAL PULMONARY HYPERTENSION
     Dosage: 10 mg, UNK
     Route: 048
     Dates: start: 20120502
  2. ADCIRCA [Concomitant]
     Dosage: 20 mg, UNK
     Route: 048
  3. ASPIRIN [Concomitant]
     Route: 048
  4. LEVOTHYROXINE [Concomitant]
     Dosage: 112 UNK, UNK
  5. IRON [Concomitant]
  6. MULTIVITAMINS [Concomitant]
  7. PLAVIX [Concomitant]
     Dosage: 75 mg, UNK

REACTIONS (1)
  - Tooth extraction [Unknown]
